FAERS Safety Report 6110437-0 (Version None)
Quarter: 2009Q1

REPORT INFORMATION
  Report Type: 
  Country: None (occurrence: None)
  Receive Date: 20090310
  Receipt Date: 20090303
  Transmission Date: 20090719
  Serious: Yes (Other)
  Sender: FDA-Public Use
  Company Number: CA-JNJCH-2009006196

PATIENT
  Sex: Female

DRUGS (1)
  1. LISTERINE WHITENING PRE-BRUSH RINSE [Suspect]
     Indication: DRUG USE FOR UNKNOWN INDICATION
     Dosage: TEXT:AS RECOMMENED UNSPECIFIED
     Route: 048

REACTIONS (3)
  - APHTHOUS STOMATITIS [None]
  - ORAL DISCOMFORT [None]
  - STOMATITIS [None]
